FAERS Safety Report 5196171-2 (Version None)
Quarter: 2006Q4

REPORT INFORMATION
  Report Type: 
  Country: None (occurrence: None)
  Receive Date: 20061221
  Receipt Date: 20061218
  Transmission Date: 20070319
  Serious: Yes (Death)
  Sender: FDA-Public Use
  Company Number: 530#5#2006-00070

PATIENT
  Age: 77 Year
  Sex: Male

DRUGS (10)
  1. ALPROSTADIL [Suspect]
     Indication: PERIPHERAL ISCHAEMIA
     Dosage: 2 X 40 UG PER DAY
     Route: 041
     Dates: start: 20061204, end: 20061217
  2. PHENAZEPAM [Concomitant]
  3. INDAPAMIDE [Concomitant]
  4. ENALAPRIL MALEATE [Concomitant]
  5. ACETYLSALICYLIC ACID TABLETS (ACETYLSALICYLIC ACID) [Concomitant]
  6. VERAPAMIL [Concomitant]
  7. CALF BLOOD DIALYSATE SOLUTION (BLOOD, CALIF, DEPROT., LMW PORTION) [Concomitant]
  8. THIOCTIC ACID 300MG, SOLUTION (THIOCTIC ACID) [Concomitant]
  9. FUROSEMIDE SOLUTION (FUROSEMIDE) [Concomitant]
  10. INSULIN ACTRAPID SOLUTION (INSULIN HUMAN) [Concomitant]

REACTIONS (1)
  - DEATH [None]
